FAERS Safety Report 4465788-2 (Version None)
Quarter: 2004Q3

REPORT INFORMATION
  Report Type: 
  Country: None (occurrence: None)
  Receive Date: 20040929
  Receipt Date: 20040715
  Transmission Date: 20050211
  Serious: Yes (Hospitalization)
  Sender: FDA-Public Use
  Company Number: 2004-BP-05637RO

PATIENT
  Age: 73 Year
  Sex: Male
  Weight: 77.6 kg

DRUGS (11)
  1. HYDROXYUREA [Suspect]
     Indication: BLOOD DISORDER
     Dosage: SEE IMAGE
     Route: 048
     Dates: start: 20040521, end: 20040604
  2. HYDROXYUREA [Suspect]
     Indication: BLOOD DISORDER
     Dosage: SEE IMAGE
     Route: 048
     Dates: start: 20040604, end: 20040611
  3. HYDROXYUREA [Suspect]
     Indication: BLOOD DISORDER
     Dosage: SEE IMAGE
     Route: 048
     Dates: start: 20040611, end: 20040617
  4. ALLEGRA [Concomitant]
  5. METOPROLOL TARTRATE [Concomitant]
  6. PLAVIX [Concomitant]
  7. OMEPRAZOLE [Concomitant]
  8. ISOSORBIDE DINITRATE [Concomitant]
  9. LISINOPRIL [Concomitant]
  10. ZOCOR [Concomitant]
  11. ASPIRIN [Concomitant]

REACTIONS (21)
  - ATOPY [None]
  - BLOOD GLUCOSE INCREASED [None]
  - BLOOD IMMUNOGLOBULIN E INCREASED [None]
  - BODY TEMPERATURE DECREASED [None]
  - DEHYDRATION [None]
  - DERMATITIS EXFOLIATIVE [None]
  - DIARRHOEA [None]
  - EOSINOPHIL COUNT INCREASED [None]
  - EOSINOPHIL PERCENTAGE INCREASED [None]
  - HEADACHE [None]
  - INFECTION PARASITIC [None]
  - MEAN CELL HAEMOGLOBIN INCREASED [None]
  - MULTIPLE MYELOMA [None]
  - NAUSEA [None]
  - OEDEMA PERIPHERAL [None]
  - PYREXIA [None]
  - SEASONAL ALLERGY [None]
  - SYSTEMIC LUPUS ERYTHEMATOSUS [None]
  - VISUAL DISTURBANCE [None]
  - VOMITING [None]
  - WHITE BLOOD CELL COUNT DECREASED [None]
